FAERS Safety Report 6966356-0 (Version None)
Quarter: 2010Q3

REPORT INFORMATION
  Report Type: 
  Country: None (occurrence: None)
  Receive Date: 20100903
  Receipt Date: 20100823
  Transmission Date: 20110219
  Serious: Yes (Death, Other)
  Sender: FDA-Public Use
  Company Number: US-ROCHE-703499

PATIENT
  Sex: Male

DRUGS (5)
  1. BEVACIZUMAB [Suspect]
     Indication: PROSTATE CANCER METASTATIC
     Dosage: OVER 30 MINUTES
     Route: 065
  2. DOCETAXEL [Suspect]
     Indication: PROSTATE CANCER METASTATIC
     Dosage: OVER 60 MINUTES
     Route: 042
  3. THALIDOMIDE [Suspect]
     Indication: PROSTATE CANCER METASTATIC
     Route: 048
  4. PREDNISONE [Suspect]
     Indication: PROSTATE CANCER METASTATIC
     Route: 065
  5. ENOXAPARIN SODIUM [Concomitant]
     Route: 058

REACTIONS (31)
  - ALANINE AMINOTRANSFERASE INCREASED [None]
  - ANAEMIA [None]
  - ANAL FISTULA [None]
  - AORTIC DISSECTION [None]
  - ASPARTATE AMINOTRANSFERASE INCREASED [None]
  - ASPIRATION [None]
  - CELLULITIS [None]
  - DIARRHOEA [None]
  - DRY EYE [None]
  - EPISTAXIS [None]
  - FATIGUE [None]
  - FEBRILE NEUTROPENIA [None]
  - GASTROINTESTINAL HAEMORRHAGE [None]
  - GASTROINTESTINAL PERFORATION [None]
  - HAEMORRHAGE [None]
  - HYPERTENSION [None]
  - HYPOALBUMINAEMIA [None]
  - LACRIMATION INCREASED [None]
  - LYMPHOPENIA [None]
  - MYOCARDIAL INFARCTION [None]
  - NEPHROTIC SYNDROME [None]
  - NEUTROPENIA [None]
  - OSTEONECROSIS OF JAW [None]
  - PALMAR-PLANTAR ERYTHRODYSAESTHESIA SYNDROME [None]
  - PLEURAL EFFUSION [None]
  - PROTEINURIA [None]
  - RECTAL ULCER [None]
  - SYNCOPE [None]
  - THROMBOCYTOPENIA [None]
  - THROMBOSIS [None]
  - ULCER [None]
